FAERS Safety Report 5059312-3 (Version None)
Quarter: 2006Q2

REPORT INFORMATION
  Report Type: 
  Country: None (occurrence: None)
  Receive Date: 20060629
  Receipt Date: 20060323
  Transmission Date: 20061013
  Serious: No
  Sender: FDA-Public Use
  Company Number: PHEH2006US03987

PATIENT
  Sex: 0

DRUGS (4)
  1. ENABLEX [Suspect]
  2. ZETIA [Concomitant]
  3. PLAVIX [Concomitant]
  4. PROZAC [Concomitant]

REACTIONS (3)
  - HEADACHE [None]
  - INCREASED UPPER AIRWAY SECRETION [None]
  - SOMNOLENCE [None]
